FAERS Safety Report 5960899-4 (Version None)
Quarter: 2008Q4

REPORT INFORMATION
  Report Type: 
  Country: None (occurrence: None)
  Receive Date: 20081121
  Receipt Date: 20081112
  Transmission Date: 20090506
  Serious: Yes (Other)
  Sender: FDA-Public Use
  Company Number: US-JNJFOC-20081103332

PATIENT
  Age: 66 Year
  Sex: Male
  Weight: 65.77 kg

DRUGS (3)
  1. EXTRA STRENGTH TYLENOL [Suspect]
     Indication: INSOMNIA
     Route: 048
  2. LISINOPRIL [Interacting]
     Indication: HYPERTENSION
  3. LIPITOR [Interacting]
     Indication: BLOOD CHOLESTEROL INCREASED

REACTIONS (2)
  - CONVULSION [None]
  - DRUG INTERACTION [None]
